FAERS Safety Report 17608132 (Version 1)
Quarter: 2020Q1

REPORT INFORMATION
  Report Type: Spontaneous
  Country: US (occurrence: US)
  Receive Date: 20200331
  Receipt Date: 20200331
  Transmission Date: 20200409
  Serious: No
  Sender: FDA-Public Use
  Company Number: US-ELI_LILLY_AND_COMPANY-US202003006516

PATIENT
  Sex: Female

DRUGS (1)
  1. EMGALITY [Suspect]
     Active Substance: GALCANEZUMAB-GNLM
     Indication: MIGRAINE
     Dosage: 120 MG, UNKNOWN
     Route: 065

REACTIONS (10)
  - Flushing [Unknown]
  - Migraine [Unknown]
  - Paraesthesia [Unknown]
  - Chills [Unknown]
  - Crying [Unknown]
  - Pain [Unknown]
  - Depressed mood [Unknown]
  - Abdominal distension [Unknown]
  - Dizziness [Unknown]
  - Palpitations [Unknown]
